FAERS Safety Report 8412754-8 (Version None)
Quarter: 2012Q2

REPORT INFORMATION
  Report Type: 
  Country: None (occurrence: None)
  Receive Date: 20120605
  Receipt Date: 20120523
  Transmission Date: 20120825
  Serious: No
  Sender: FDA-Public Use
  Company Number: US-AMGEN-USASP2012032458

PATIENT
  Age: 61 Year
  Sex: Female

DRUGS (24)
  1. CYANOCOBALAMIN [Concomitant]
     Dosage: UNK
  2. LORTAB [Concomitant]
  3. SIMETHICONE [Concomitant]
     Dosage: UNK
  4. CARVEDILOL [Concomitant]
     Dosage: UNK
  5. EFFIENT [Concomitant]
     Dosage: UNK
  6. METHOTREXATE [Concomitant]
     Dosage: UNK
  7. IBUPROFEN [Concomitant]
     Dosage: UNK
  8. CITALOPRAM HYDROBROMIDE [Concomitant]
     Dosage: UNK
  9. ASPIRIN [Concomitant]
     Dosage: UNK MG, UNK
  10. LORATADINE [Concomitant]
     Dosage: UNK
  11. VITAMIN D                          /00318501/ [Concomitant]
     Dosage: UNK
  12. LORATA-DINE D                      /01202601/ [Concomitant]
     Dosage: UNK
  13. NORVASC [Concomitant]
     Dosage: UNK
  14. ENBREL [Suspect]
     Indication: RHEUMATOID ARTHRITIS
     Dosage: 50 MG, QWK
     Dates: start: 20120501
  15. ACETAMINOPHEN [Concomitant]
     Dosage: UNK MG, UNK
  16. HUMALOG [Concomitant]
     Dosage: UNK
  17. LYSINE [Concomitant]
     Dosage: UNK
  18. PROTONIX [Concomitant]
     Dosage: UNK
  19. CALCIUM [Concomitant]
     Dosage: UNK
  20. ANTACIDS WITH ANTIFLATULENTS [Concomitant]
     Dosage: UNK
  21. BIOTIN [Concomitant]
     Dosage: UNK
  22. COZAAR [Concomitant]
     Dosage: UNK
  23. TRAMADOL HCL [Concomitant]
     Dosage: UNK
  24. PRAVASTATIN [Concomitant]
     Dosage: UNK

REACTIONS (1)
  - INJECTION SITE HAEMATOMA [None]
